FAERS Safety Report 9421867 (Version 1)
Quarter: 2013Q3

REPORT INFORMATION
  Report Type: Spontaneous
  Country: FR (occurrence: FR)
  Receive Date: 20130726
  Receipt Date: 20130726
  Transmission Date: 20140515
  Serious: Yes (Life-Threatening, Hospitalization, Other)
  Sender: FDA-Public Use
  Company Number: FR-009507513-1204FRA00108

PATIENT
  Age: 56 Year
  Sex: Male
  Weight: 49 kg

DRUGS (5)
  1. JANUMET [Suspect]
     Indication: TYPE 2 DIABETES MELLITUS
     Dosage: 1000MG -50
     Route: 048
     Dates: end: 20120410
  2. TELAPREVIR [Suspect]
     Indication: CHRONIC HEPATITIS C
     Dosage: 1125 MG, BID
     Route: 048
     Dates: start: 20120124, end: 20120410
  3. PEGASYS [Suspect]
     Indication: CHRONIC HEPATITIS C
     Dosage: 180 ?G, QW
     Route: 058
     Dates: start: 20120124, end: 20120410
  4. COPEGUS [Suspect]
     Indication: CHRONIC HEPATITIS C
     Dosage: 400 MG, BID
     Route: 048
     Dates: start: 20120124, end: 20120410
  5. NEORECORMON [Concomitant]
     Route: 058

REACTIONS (9)
  - Multi-organ failure [Not Recovered/Not Resolved]
  - Rhabdomyolysis [Recovering/Resolving]
  - Lactic acidosis [Not Recovered/Not Resolved]
  - Hepatic failure [Unknown]
  - Factor V deficiency [Unknown]
  - Thrombocytopenia [Unknown]
  - Renal failure [Unknown]
  - Anaemia [Unknown]
  - Escherichia test positive [Unknown]
